FAERS Safety Report 9979279 (Version 1)
Quarter: 2014Q1

REPORT INFORMATION
  Report Type: Report from Study
  Country: US (occurrence: US)
  Receive Date: 20140306
  Receipt Date: 20140306
  Transmission Date: 20141002
  Serious: No
  Sender: FDA-Public Use
  Company Number: US-ABBVIE-13P-163-1169804-00

PATIENT
  Age: 53 Year
  Sex: Male

DRUGS (12)
  1. HUMIRA [Suspect]
     Indication: COLITIS ULCERATIVE
     Dates: start: 20131101, end: 20131101
  2. DELZICOL [Concomitant]
     Indication: COLITIS ULCERATIVE
  3. CIALIS [Concomitant]
     Indication: ERECTILE DYSFUNCTION
     Dosage: 5MG DAILY
  4. BYSTOLIC [Concomitant]
     Indication: BLOOD PRESSURE
     Dosage: 5MG DAILY
  5. DEXILANT [Concomitant]
     Indication: PHARYNGEAL DISORDER
     Dosage: 60MG DAILY
  6. PRAVASTATIN [Concomitant]
     Indication: BLOOD CHOLESTEROL INCREASED
     Dosage: 20MG DAILY
  7. TRIBENZOR [Concomitant]
     Indication: HYPERTENSION
     Dosage: 40-5-2 DAILY
  8. LORAZEPAM [Concomitant]
     Indication: ANXIETY
  9. DELZICOL [Concomitant]
     Indication: COLITIS ULCERATIVE
     Dates: start: 20131008, end: 20131017
  10. DELZICOL [Concomitant]
     Dates: start: 20131018, end: 20131028
  11. DELZICOL [Concomitant]
  12. DELZICOL [Concomitant]
     Dates: end: 20131112

REACTIONS (1)
  - Injection site bruising [Recovering/Resolving]
